FAERS Safety Report 6742728-4 (Version None)
Quarter: 2010Q2

REPORT INFORMATION
  Report Type: 
  Country: None (occurrence: None)
  Receive Date: 20100526
  Receipt Date: 20100129
  Transmission Date: 20101027
  Serious: No
  Sender: FDA-Public Use
  Company Number: US-ABBOTT-10P-163-0623526-00

PATIENT
  Sex: Male

DRUGS (6)
  1. ZEMPLAR [Suspect]
     Indication: RENAL DISORDER
     Dates: start: 20091001, end: 20100128
  2. ZEMPLAR [Suspect]
     Dates: start: 20100128
  3. PRILOSEC [Concomitant]
     Indication: GASTROOESOPHAGEAL REFLUX DISEASE
  4. LABETALOL HCL [Concomitant]
     Indication: HYPERTENSION
  5. ALLOPURINOL [Concomitant]
     Indication: RENAL DISORDER
  6. CALCIUM PLUS D [Concomitant]
     Indication: MINERAL SUPPLEMENTATION

REACTIONS (2)
  - CONSTIPATION [None]
  - DRY MOUTH [None]
